FAERS Safety Report 17192550 (Version 3)
Quarter: 2022Q4

REPORT INFORMATION
  Report Type: Spontaneous
  Country: PT (occurrence: None)
  Receive Date: 20191223
  Receipt Date: 20221028
  Transmission Date: 20230113
  Serious: Yes (Hospitalization, Other)
  Sender: FDA-Public Use
  Company Number: 2019SF82896

PATIENT
  Age: 20 Year
  Sex: Male

DRUGS (7)
  1. BUDESONIDE [Suspect]
     Active Substance: BUDESONIDE
     Indication: Asthma
     Dosage: 160 UG, SOS UNKNOWN
     Route: 045
  2. BUDESONIDE [Suspect]
     Active Substance: BUDESONIDE
     Indication: Asthma
     Dosage: 200.0UG UNKNOWN
     Route: 045
  3. FORMOTEROL [Suspect]
     Active Substance: FORMOTEROL
     Indication: Asthma
     Dosage: 4.5 UG SOS UNKNOWN
     Route: 055
  4. BUDESONIDE\FORMOTEROL [Suspect]
     Active Substance: BUDESONIDE\FORMOTEROL
     Indication: Asthma
     Dosage: 160/4.5 MCG UNKNOWN
     Route: 045
  5. IBUPROFEN [Suspect]
     Active Substance: IBUPROFEN
     Indication: Asthma
     Dosage: UNK
     Route: 065
  6. ASPIRIN [Suspect]
     Active Substance: ASPIRIN
     Indication: Product used for unknown indication
     Dosage: UNK
     Route: 065
  7. MONTELUKAST [Suspect]
     Active Substance: MONTELUKAST SODIUM
     Indication: Asthma
     Route: 065

REACTIONS (13)
  - Paranasal sinus mucosal hypertrophy [Unknown]
  - Sinusitis [Unknown]
  - Nasal polyps [Unknown]
  - Nasal obstruction [Recovering/Resolving]
  - Bronchial disorder [Recovering/Resolving]
  - Anaphylactic reaction [Recovered/Resolved]
  - Anosmia [Not Recovered/Not Resolved]
  - Eosinophilia [Unknown]
  - Drug intolerance [Unknown]
  - Taste disorder [Not Recovered/Not Resolved]
  - Nasal turbinate hypertrophy [Unknown]
  - Condition aggravated [Unknown]
  - Asthma [Unknown]
